FAERS Safety Report 8297884-6 (Version None)
Quarter: 2012Q2

REPORT INFORMATION
  Report Type: 
  Country: None (occurrence: None)
  Receive Date: 20120419
  Receipt Date: 20120411
  Transmission Date: 20120825
  Serious: Yes (Life-Threatening, Hospitalization, Other)
  Sender: FDA-Public Use
  Company Number: PHEH2012US006752

PATIENT
  Age: 68 Year
  Sex: Female

DRUGS (2)
  1. GILENYA [Suspect]
     Indication: MULTIPLE SCLEROSIS
     Dosage: 0.5 MG, QD
     Route: 048
     Dates: end: 20120301
  2. CYTOXAN [Concomitant]
     Indication: MULTIPLE SCLEROSIS
     Dosage: 400 MG, UNK

REACTIONS (10)
  - PNEUMONIA [None]
  - CENTRAL NERVOUS SYSTEM LESION [None]
  - COGNITIVE DISORDER [None]
  - INCOHERENT [None]
  - ABNORMAL BEHAVIOUR [None]
  - POSTERIOR REVERSIBLE ENCEPHALOPATHY SYNDROME [None]
  - CONVULSION [None]
  - HYPERTENSION [None]
  - PERSONALITY CHANGE [None]
  - URINARY TRACT INFECTION [None]
